FAERS Safety Report 24458027 (Version 2)
Quarter: 2025Q2

REPORT INFORMATION
  Report Type: Other
  Country: CA (occurrence: CA)
  Receive Date: 20241018
  Receipt Date: 20250403
  Transmission Date: 20250716
  Serious: No
  Sender: TOLMAR
  Company Number: CA-TOLMAR, INC.-24CA053147

PATIENT
  Sex: Male

DRUGS (3)
  1. ELIGARD [Suspect]
     Active Substance: LEUPROLIDE ACETATE
     Indication: Prostate cancer
     Dosage: 45 MILLIGRAM, Q 6 MONTH
     Route: 058
     Dates: start: 20231030
  2. ELIGARD [Suspect]
     Active Substance: LEUPROLIDE ACETATE
     Dosage: 45 MILLIGRAM, Q 6 MONTH
     Route: 058
     Dates: start: 20241004
  3. ELIGARD [Suspect]
     Active Substance: LEUPROLIDE ACETATE
     Dosage: 45 MILLIGRAM, Q 6 MONTH
     Route: 058
     Dates: start: 20250321

REACTIONS (4)
  - Dizziness postural [Unknown]
  - Fatigue [Unknown]
  - Weight increased [Unknown]
  - Hot flush [Unknown]
